FAERS Safety Report 5942435-1 (Version None)
Quarter: 2008Q4

REPORT INFORMATION
  Report Type: 
  Country: None (occurrence: None)
  Receive Date: 20081105
  Receipt Date: 20081027
  Transmission Date: 20090506
  Serious: Yes (Hospitalization)
  Sender: FDA-Public Use
  Company Number: ES-PFIZER INC-2008092062

PATIENT
  Age: 36 Year
  Sex: Female

DRUGS (5)
  1. AREMIS [Suspect]
     Indication: DEPRESSION
     Route: 048
     Dates: start: 20060101
  2. DESMOPRESSIN ACETATE [Interacting]
     Indication: HYPOPITUITARISM
     Route: 048
     Dates: start: 20080101, end: 20080817
  3. LEVOTHYROXINE SODIUM [Concomitant]
  4. HYDROCORTISONE [Concomitant]
  5. ALPRAZOLAM [Concomitant]

REACTIONS (2)
  - DRUG INTERACTION [None]
  - HYPONATRAEMIA [None]
